FAERS Safety Report 5115363-1 (Version None)
Quarter: 2006Q3

REPORT INFORMATION
  Report Type: 
  Country: None (occurrence: None)
  Receive Date: 20060922
  Receipt Date: 20060912
  Transmission Date: 20061208
  Serious: Yes (Other)
  Sender: FDA-Public Use
  Company Number: 2006081404

PATIENT
  Age: 26 Year
  Sex: Female
  Weight: 60 kg

DRUGS (4)
  1. DEPO-PROVERA [Suspect]
     Indication: CONTRACEPTION
     Dosage: 150 MG (150 MG, 1ST INJECTION, EVERY 3 MONTHS, 1ST CYCLE), INTRAMUSCULAR, (SEE IMAGE)
     Route: 030
     Dates: start: 20031001, end: 20031001
  2. DEPO-PROVERA [Suspect]
     Indication: CONTRACEPTION
     Dosage: 150 MG (150 MG, 1ST INJECTION, EVERY 3 MONTHS, 1ST CYCLE), INTRAMUSCULAR, (SEE IMAGE)
     Route: 030
     Dates: start: 20050101, end: 20050101
  3. DEPO-PROVERA [Suspect]
     Indication: CONTRACEPTION
     Dosage: 150 MG (150 MG, 1ST INJECTION, EVERY 3 MONTHS, 1ST CYCLE), INTRAMUSCULAR, (SEE IMAGE)
     Route: 030
     Dates: start: 20060603, end: 20060603
  4. DEPO-PROVERA [Suspect]
     Indication: CONTRACEPTION
     Dosage: 150 MG (150 MG, 1ST INJECTION, EVERY 3 MONTHS, 1ST CYCLE), INTRAMUSCULAR, (SEE IMAGE)
     Route: 030
     Dates: start: 20060903, end: 20060903

REACTIONS (9)
  - DEPRESSION [None]
  - HEADACHE [None]
  - HYPERTENSION [None]
  - INAPPROPRIATE SCHEDULE OF DRUG ADMINISTRATION [None]
  - MENSTRUATION IRREGULAR [None]
  - NAUSEA [None]
  - NERVOUSNESS [None]
  - SOMNOLENCE [None]
  - WEIGHT INCREASED [None]
